FAERS Safety Report 9426075 (Version 1)
Quarter: 2013Q3

REPORT INFORMATION
  Report Type: Spontaneous
  Country: CA (occurrence: CA)
  Receive Date: 20130730
  Receipt Date: 20130730
  Transmission Date: 20140515
  Serious: Yes (Hospitalization)
  Sender: FDA-Public Use
  Company Number: CA-AMGEN-CANSP2013052388

PATIENT
  Age: 61 Year
  Sex: Female

DRUGS (9)
  1. ENBREL [Suspect]
     Indication: RHEUMATOID ARTHRITIS
     Dosage: 50 MG, UNK
     Route: 065
     Dates: start: 20130723
  2. RITUXAN [Suspect]
     Indication: PRODUCT USED FOR UNKNOWN INDICATION
     Dosage: UNK
     Route: 065
  3. CELEBREX [Concomitant]
     Dosage: 200 MG, X1 PILL TWICE A DAY
  4. GLUCOSAMINE [Concomitant]
     Dosage: UNK
  5. VITAMIN B12                        /00056201/ [Concomitant]
     Dosage: UNK
  6. CALCIUM [Concomitant]
     Dosage: UNK
  7. MAGNESIUM [Concomitant]
     Dosage: UNK
  8. VITAMIN C                          /00008001/ [Concomitant]
     Dosage: UNK
  9. VALTREX [Concomitant]
     Dosage: UNK

REACTIONS (1)
  - Dizziness [Unknown]
